FAERS Safety Report 13670695 (Version 2)
Quarter: 2017Q3

REPORT INFORMATION
  Report Type: Report from Study
  Country: US (occurrence: US)
  Receive Date: 20170620
  Receipt Date: 20170726
  Transmission Date: 20171127
  Serious: Yes (Other)
  Sender: FDA-Public Use
  Company Number: US-SHIRE-US201713413

PATIENT
  Sex: Female
  Weight: 40.82 kg

DRUGS (1)
  1. XIIDRA [Suspect]
     Active Substance: LIFITEGRAST
     Indication: DRY EYE
     Dosage: 1 GTT, 2X/DAY:BID
     Route: 047
     Dates: start: 20170607

REACTIONS (6)
  - Instillation site paraesthesia [Unknown]
  - Instillation site lacrimation [Unknown]
  - Drug ineffective [Unknown]
  - Instillation site reaction [Unknown]
  - Glaucoma [Unknown]
  - Product quality issue [Unknown]

NARRATIVE: CASE EVENT DATE: 2017
